FAERS Safety Report 5834686-1 (Version None)
Quarter: 2008Q3

REPORT INFORMATION
  Report Type: 
  Country: None (occurrence: None)
  Receive Date: 20080805
  Receipt Date: 20080731
  Transmission Date: 20090109
  Serious: Yes (Hospitalization)
  Sender: FDA-Public Use
  Company Number: CH-MERCK-0807CHE00008

PATIENT
  Age: 61 Year
  Sex: Male

DRUGS (9)
  1. FOSAMAX [Suspect]
     Indication: OSTEOPOROSIS
     Route: 048
     Dates: start: 20020101
  2. PREDNISONE [Suspect]
     Indication: RHEUMATOID ARTHRITIS
     Route: 048
     Dates: start: 19990101
  3. ESOMEPRAZOLE MAGNESIUM [Suspect]
     Indication: GASTROOESOPHAGEAL REFLUX DISEASE
     Route: 048
  4. CALCIUM CARBONATE AND CHOLECALCIFEROL [Concomitant]
     Indication: OSTEOPOROSIS
     Route: 048
  5. METHOTREXATE [Concomitant]
     Indication: RHEUMATOID ARTHRITIS
     Route: 048
     Dates: start: 20020101
  6. AMLODIPINE BESYLATE [Concomitant]
     Indication: ESSENTIAL HYPERTENSION
     Route: 048
  7. TAMSULOSIN HYDROCHLORIDE [Concomitant]
     Route: 048
  8. IRBESARTAN [Concomitant]
     Indication: ESSENTIAL HYPERTENSION
     Route: 048
  9. TRAMADOL HYDROCHLORIDE [Concomitant]
     Route: 065

REACTIONS (2)
  - FEMUR FRACTURE [None]
  - IMPAIRED HEALING [None]
